FAERS Safety Report 5988501-6 (Version None)
Quarter: 2008Q4

REPORT INFORMATION
  Report Type: 
  Country: None (occurrence: None)
  Receive Date: 20081204
  Receipt Date: 20081124
  Transmission Date: 20090506
  Serious: Yes (Death, Hospitalization)
  Sender: FDA-Public Use
  Company Number: GXKR2008JP11186

PATIENT
  Sex: Female
  Weight: 42.5 kg

DRUGS (3)
  1. PAROXETINE (NGX) (PAROXETINE) [Suspect]
     Indication: DEPRESSION
  2. TRAXODONE (NGX) (TRAZODONE) [Suspect]
     Indication: DEPRESSION
  3. FLUNITRAZEPAM (NGX) (FLUNITRAZEPAM) [Suspect]
     Indication: DEPRESSION

REACTIONS (9)
  - BRAIN OEDEMA [None]
  - CARDIO-RESPIRATORY ARREST [None]
  - DEPRESSED LEVEL OF CONSCIOUSNESS [None]
  - DRUG TOXICITY [None]
  - INHIBITORY DRUG INTERACTION [None]
  - LOSS OF CONSCIOUSNESS [None]
  - MULTIPLE DRUG OVERDOSE [None]
  - PULMONARY CONGESTION [None]
  - PULMONARY OEDEMA [None]
